FAERS Safety Report 9677608 (Version 1)
Quarter: 2013Q4

REPORT INFORMATION
  Report Type: Spontaneous
  Country: US (occurrence: None)
  Receive Date: 20131107
  Receipt Date: 20131107
  Transmission Date: 20140711
  Serious: Yes (Other)
  Sender: FDA-Public Use
  Company Number: None

PATIENT
  Age: 59 Year
  Sex: Female

DRUGS (1)
  1. ENBREL [Suspect]
     Dosage: ONCE WEEKLY
     Dates: start: 20131104

REACTIONS (5)
  - Injection site rash [None]
  - Erythema [None]
  - Pruritus [None]
  - Pain [None]
  - Swelling [None]
